FAERS Safety Report 13608869 (Version 2)
Quarter: 2017Q2

REPORT INFORMATION
  Report Type: Spontaneous
  Country: US (occurrence: US)
  Receive Date: 20170602
  Receipt Date: 20170612
  Transmission Date: 20170830
  Serious: Yes (Other)
  Sender: FDA-Public Use
  Company Number: GXBR2017US001809

PATIENT
  Age: 77 Year
  Sex: Female

DRUGS (4)
  1. TRAVATAN Z [Concomitant]
     Active Substance: TRAVOPROST
     Indication: PRODUCT USED FOR UNKNOWN INDICATION
     Dosage: 1 GTT,
     Route: 047
     Dates: start: 20110304
  2. LATANOPROST. [Suspect]
     Active Substance: LATANOPROST
     Indication: GLAUCOMA
     Dosage: 1 GTT, OU QD
     Route: 047
     Dates: start: 20170406
  3. ASPIRIN 81 [Suspect]
     Active Substance: ASPIRIN
     Indication: PRODUCT USED FOR UNKNOWN INDICATION
     Dosage: 81 MG, QD
     Route: 065
  4. ROSUVASTATIN. [Concomitant]
     Active Substance: ROSUVASTATIN
     Indication: BLOOD CHOLESTEROL
     Dosage: 1 DF, QD AT NIGHT
     Route: 048

REACTIONS (8)
  - Cataract [Not Recovered/Not Resolved]
  - Blepharitis [Unknown]
  - Coagulopathy [Not Recovered/Not Resolved]
  - Macular fibrosis [Not Recovered/Not Resolved]
  - Meibomianitis [Not Recovered/Not Resolved]
  - Blepharal papilloma [Not Recovered/Not Resolved]
  - Blepharal pigmentation [Not Recovered/Not Resolved]
  - Conjunctival haemorrhage [Not Recovered/Not Resolved]

NARRATIVE: CASE EVENT DATE: 20170522
